FAERS Safety Report 8248821-1 (Version None)
Quarter: 2012Q2

REPORT INFORMATION
  Report Type: 
  Country: None (occurrence: None)
  Receive Date: 20120401
  Receipt Date: 20120322
  Transmission Date: 20120825
  Serious: Yes (Hospitalization)
  Sender: FDA-Public Use
  Company Number: PHHY2012AU017207

PATIENT
  Sex: Male

DRUGS (2)
  1. CLOZARIL [Suspect]
     Dosage: 25 MG, UNK
     Dates: start: 19990907
  2. TETRAHYDROCANNABINOL [Concomitant]

REACTIONS (1)
  - MENTAL IMPAIRMENT [None]
